FAERS Safety Report 19844732 (Version 1)
Quarter: 2021Q3

REPORT INFORMATION
  Report Type: Spontaneous
  Country: US (occurrence: US)
  Receive Date: 20210915
  Receipt Date: 20210915
  Transmission Date: 20211014
  Serious: No
  Sender: FDA-Public Use
  Company Number: None

PATIENT
  Age: 68 Year
  Sex: Male
  Weight: 97.52 kg

DRUGS (2)
  1. LISINOPRIL. [Suspect]
     Active Substance: LISINOPRIL
     Indication: RENAL DISORDER PROPHYLAXIS
     Dates: start: 20210401, end: 20210409
  2. LISINOPRIL. [Suspect]
     Active Substance: LISINOPRIL
     Indication: DIABETES MELLITUS
     Dates: start: 20210401, end: 20210409

REACTIONS (10)
  - Acute respiratory failure [None]
  - Angioedema [None]
  - Lip swelling [None]
  - Metabolic alkalosis [None]
  - Swelling face [None]
  - Hypokalaemia [None]
  - Irregular breathing [None]
  - Unresponsive to stimuli [None]
  - Brain injury [None]
  - Pneumonia bacterial [None]

NARRATIVE: CASE EVENT DATE: 20210409
